FAERS Safety Report 8614443-3 (Version None)
Quarter: 2012Q3

REPORT INFORMATION
  Report Type: 
  Country: None (occurrence: None)
  Receive Date: 20120823
  Receipt Date: 20120817
  Transmission Date: 20120928
  Serious: Yes (Hospitalization, Other)
  Sender: FDA-Public Use
  Company Number: PHEH2012US016363

PATIENT
  Sex: Male

DRUGS (8)
  1. LISINOPRIL [Concomitant]
     Dosage: UNK UKN, UNK
  2. ASPIRIN [Concomitant]
     Dosage: 81 MG, QD
  3. SODIUM BICARBONATE [Concomitant]
     Dosage: 1 MG, BID
  4. TOBI [Suspect]
     Indication: CYSTIC FIBROSIS
     Dosage: 300 MG, BID
     Dates: start: 20111201, end: 20120701
  5. POTASSIUM CHLORIDE [Concomitant]
     Dosage: 10 MEQ, QD
  6. LASIX [Concomitant]
     Dosage: 40 MG, QD
  7. WARFARIN SODIUM [Concomitant]
     Dosage: UNK UKN, UNK
  8. METFORMIN [Concomitant]
     Dosage: UNK UKN, UNK

REACTIONS (6)
  - COUGH [None]
  - BLOOD SODIUM DECREASED [None]
  - PNEUMONIA [None]
  - PULMONARY OEDEMA [None]
  - BLOOD POTASSIUM DECREASED [None]
  - DEHYDRATION [None]
